FAERS Safety Report 18589745 (Version 1)
Quarter: 2020Q4

REPORT INFORMATION
  Report Type: Spontaneous
  Country: US (occurrence: US)
  Receive Date: 20201208
  Receipt Date: 20201208
  Transmission Date: 20210114
  Serious: Yes (Other)
  Sender: FDA-Public Use
  Company Number: US-DRREDDYS-USA/USA/20/0129804

PATIENT
  Age: 57 Year
  Sex: Male

DRUGS (3)
  1. OXYCODONE AND ACETAMINOPHEN [Concomitant]
     Active Substance: ACETAMINOPHEN\OXYCODONE HYDROCHLORIDE
     Indication: PRODUCT USED FOR UNKNOWN INDICATION
  2. PREGABALIN. [Suspect]
     Active Substance: PREGABALIN
     Indication: MERALGIA PARAESTHETICA
  3. OXYCODONE W/PARACETAMOL [Concomitant]
     Active Substance: ACETAMINOPHEN\OXYCODONE HYDROCHLORIDE
     Indication: PRODUCT USED FOR UNKNOWN INDICATION

REACTIONS (3)
  - Sexual dysfunction [Recovered/Resolved]
  - Cognitive disorder [Recovered/Resolved]
  - Somnolence [Recovered/Resolved]
